FAERS Safety Report 16717466 (Version 2)
Quarter: 2019Q3

REPORT INFORMATION
  Report Type: Report from Study
  Country: CA (occurrence: CA)
  Receive Date: 20190819
  Receipt Date: 20190829
  Transmission Date: 20191005
  Serious: No
  Sender: FDA-Public Use
  Company Number: CA-BEH-2019105403

PATIENT
  Sex: Male

DRUGS (6)
  1. BERINERT [Suspect]
     Active Substance: HUMAN C1-ESTERASE INHIBITOR
     Indication: HEREDITARY ANGIOEDEMA WITH C1 ESTERASE INHIBITOR DEFICIENCY
     Dosage: 4500 INTERNATIONAL UNIT, QW
     Route: 058
     Dates: start: 20190513
  2. BERINERT [Suspect]
     Active Substance: HUMAN C1-ESTERASE INHIBITOR
     Indication: PROPHYLAXIS
  3. BERINERT [Suspect]
     Active Substance: HUMAN C1-ESTERASE INHIBITOR
     Indication: PROPHYLAXIS
  4. CYCLOMEN [Concomitant]
     Active Substance: DANAZOL
  5. FIRAZYR [Concomitant]
     Active Substance: ICATIBANT ACETATE
  6. BERINERT [Suspect]
     Active Substance: HUMAN C1-ESTERASE INHIBITOR
     Indication: HEREDITARY ANGIOEDEMA WITH C1 ESTERASE INHIBITOR DEFICIENCY
     Dosage: 4500 INTERNATIONAL UNIT, QW
     Route: 058
     Dates: start: 20190513

REACTIONS (4)
  - Incorrect route of product administration [Unknown]
  - No adverse event [Unknown]
  - Product use in unapproved indication [Unknown]
  - Liquid product physical issue [Unknown]
